FAERS Safety Report 24009907 (Version 1)
Quarter: 2024Q2

REPORT INFORMATION
  Report Type: Spontaneous
  Country: US (occurrence: US)
  Receive Date: 20240625
  Receipt Date: 20240625
  Transmission Date: 20240716
  Serious: No
  Sender: FDA-Public Use
  Company Number: US-FERRINGPH-2024FE02209

PATIENT
  Sex: Female

DRUGS (2)
  1. REBYOTA [Suspect]
     Active Substance: DONOR HUMAN STOOL
     Indication: Product used for unknown indication
     Dosage: UNK, ONCE/SINGLE
     Route: 065
     Dates: start: 20240229, end: 20240229
  2. REBYOTA [Suspect]
     Active Substance: DONOR HUMAN STOOL
     Dosage: UNK, ONCE/SINGLE
     Route: 065
     Dates: start: 20231226, end: 20231226

REACTIONS (2)
  - Diarrhoea [Unknown]
  - Clostridium test positive [Unknown]

NARRATIVE: CASE EVENT DATE: 20240424
